FAERS Safety Report 8947491 (Version 1)
Quarter: 2012Q4

REPORT INFORMATION
  Report Type: 
  Country: US (occurrence: US)
  Receive Date: 20121205
  Receipt Date: 20121205
  Transmission Date: 20130627
  Serious: Yes (Death, Other)
  Sender: FDA-Public Use
  Company Number: US-ROCHE-1083141

PATIENT
  Sex: Male

DRUGS (2)
  1. ZELBORAF [Suspect]
     Indication: METASTATIC MALIGNANT MELANOMA
     Route: 048
  2. MORPHINE [Concomitant]

REACTIONS (5)
  - Sepsis [Fatal]
  - Dermatitis exfoliative [Unknown]
  - Poisoning [Unknown]
  - Generalised erythema [Unknown]
  - Blister [Unknown]
